FAERS Safety Report 9759298 (Version 1)
Quarter: 2013Q4

REPORT INFORMATION
  Report Type: Spontaneous
  Country: US (occurrence: None)
  Receive Date: 20131216
  Receipt Date: 20131216
  Transmission Date: 20140711
  Serious: Yes (Other)
  Sender: FDA-Public Use
  Company Number: 163-21880-12052334

PATIENT
  Age: 54 Year
  Sex: Male

DRUGS (1)
  1. REVLIMID [Suspect]
     Dosage: 10 MG, 28 IN 28 D, PO?

REACTIONS (2)
  - Oedema peripheral [None]
  - Dizziness [None]
